FAERS Safety Report 8565152-0 (Version None)
Quarter: 2012Q3

REPORT INFORMATION
  Report Type: 
  Country: None (occurrence: None)
  Receive Date: 20120723
  Receipt Date: 20120711
  Transmission Date: 20120928
  Serious: Yes (Hospitalization, Other)
  Sender: FDA-Public Use
  Company Number: ADR-2011-10250

PATIENT
  Age: 27 Year
  Sex: Male

DRUGS (3)
  1. LIORESAL [Suspect]
     Indication: BRAIN INJURY
  2. LIORESAL [Suspect]
     Indication: CEREBRAL PALSY
  3. LIORESAL [Suspect]
     Indication: HEAD INJURY

REACTIONS (8)
  - TINNITUS [None]
  - DEVICE RELATED INFECTION [None]
  - STAPHYLOCOCCAL INFECTION [None]
  - RENAL FAILURE [None]
  - NO THERAPEUTIC RESPONSE [None]
  - IMPLANT SITE INFECTION [None]
  - DRUG HYPERSENSITIVITY [None]
  - MENINGITIS [None]
